FAERS Safety Report 20466162 (Version 1)
Quarter: 2022Q1

REPORT INFORMATION
  Report Type: Spontaneous
  Country: US (occurrence: None)
  Receive Date: 20220213
  Receipt Date: 20220213
  Transmission Date: 20220423
  Serious: No
  Sender: FDA-Public Use
  Company Number: US-Merck Healthcare KGaA-9297344

PATIENT
  Sex: Female

DRUGS (1)
  1. MAVENCLAD [Suspect]
     Active Substance: CLADRIBINE
     Indication: Multiple sclerosis
     Dosage: YEAR ONE THERAPY

REACTIONS (3)
  - Hepatic enzyme increased [Unknown]
  - Malaise [Unknown]
  - Idiosyncratic drug reaction [Unknown]

NARRATIVE: CASE EVENT DATE: 20210101
